FAERS Safety Report 15117372 (Version 1)
Quarter: 2018Q3

REPORT INFORMATION
  Report Type: Spontaneous
  Country: US (occurrence: US)
  Receive Date: 20180706
  Receipt Date: 20180706
  Transmission Date: 20181010
  Serious: Yes (Death, Other)
  Sender: FDA-Public Use
  Company Number: US-FRESENIUS KABI-FK201807581

PATIENT
  Age: 71 Year
  Sex: Female

DRUGS (1)
  1. CARBOPLATIN (MANUFACTURER UNKNOWN) [Suspect]
     Active Substance: CARBOPLATIN
     Indication: LARYNGEAL SQUAMOUS CELL CARCINOMA
     Route: 065

REACTIONS (4)
  - Hypoxic-ischaemic encephalopathy [Fatal]
  - Dehydration [Unknown]
  - Hypoglycaemia [Fatal]
  - Failure to thrive [Unknown]
